FAERS Safety Report 25577582 (Version 2)
Quarter: 2025Q3

REPORT INFORMATION
  Report Type: Other
  Country: CA (occurrence: CA)
  Receive Date: 20250718
  Receipt Date: 20250724
  Transmission Date: 20251020
  Serious: Yes (Other)
  Sender: PFIZER
  Company Number: CA-PFIZER INC-202500144345

PATIENT
  Sex: Male

DRUGS (17)
  1. DOXORUBICIN HYDROCHLORIDE [Interacting]
     Active Substance: DOXORUBICIN HYDROCHLORIDE
     Indication: Diffuse large B-cell lymphoma
  2. RITUXIMAB [Interacting]
     Active Substance: RITUXIMAB
     Indication: Diffuse large B-cell lymphoma
  3. VINCRISTINE SULFATE [Interacting]
     Active Substance: VINCRISTINE SULFATE
  4. ATAZANAVIR SULFATE [Interacting]
     Active Substance: ATAZANAVIR SULFATE
     Indication: HIV infection
  5. CYCLOPHOSPHAMIDE [Interacting]
     Active Substance: CYCLOPHOSPHAMIDE
     Indication: Diffuse large B-cell lymphoma
  6. DARUNAVIR [Interacting]
     Active Substance: DARUNAVIR
     Indication: HIV infection
  7. DIDANOSINE [Interacting]
     Active Substance: DIDANOSINE
     Indication: HIV infection
  8. EFAVIRENZ [Interacting]
     Active Substance: EFAVIRENZ
     Indication: HIV infection
  9. FOSAMPRENAVIR CALCIUM [Interacting]
     Active Substance: FOSAMPRENAVIR CALCIUM
     Indication: HIV infection
  10. INDINAVIR SULFATE [Interacting]
     Active Substance: INDINAVIR SULFATE
     Indication: HIV infection
  11. ISENTRESS [Interacting]
     Active Substance: RALTEGRAVIR POTASSIUM
     Indication: HIV infection
  12. KALETRA [Interacting]
     Active Substance: LOPINAVIR\RITONAVIR
     Indication: HIV infection
  13. NEVIRAPINE [Interacting]
     Active Substance: NEVIRAPINE
     Indication: HIV infection
  14. PREDNISONE [Interacting]
     Active Substance: PREDNISONE
     Indication: Diffuse large B-cell lymphoma
  15. RITONAVIR [Interacting]
     Active Substance: RITONAVIR
     Indication: HIV infection
  16. STAVUDINE [Interacting]
     Active Substance: STAVUDINE
     Indication: HIV infection
  17. ZIDOVUDINE [Interacting]
     Active Substance: ZIDOVUDINE
     Indication: HIV infection

REACTIONS (17)
  - Acute kidney injury [Unknown]
  - Alanine aminotransferase increased [Unknown]
  - Anaemia [Unknown]
  - Aspartate aminotransferase increased [Unknown]
  - Blood bilirubin increased [Unknown]
  - Cerebral ischaemia [Unknown]
  - Cystitis noninfective [Unknown]
  - Drug interaction [Unknown]
  - Febrile neutropenia [Unknown]
  - Haematuria [Unknown]
  - Infection [Unknown]
  - Myalgia [Unknown]
  - Pulmonary embolism [Unknown]
  - Seizure [Unknown]
  - Thrombosis [Unknown]
  - Tumour lysis syndrome [Unknown]
  - Vomiting [Unknown]
